FAERS Safety Report 10932628 (Version 1)
Quarter: 2015Q1

REPORT INFORMATION
  Report Type: Spontaneous
  Country: None (occurrence: None)
  Receive Date: 20150319
  Receipt Date: 20150319
  Transmission Date: 20150721
  Serious: Yes (Disabling)
  Sender: FDA-Public Use
  Company Number: None

PATIENT
  Age: 37 Year
  Sex: Female
  Weight: 74.84 kg

DRUGS (1)
  1. CIPROFLOXACIN (CIPROFLOXACIN ) [Suspect]
     Active Substance: CIPROFLOXACIN
     Indication: URINARY TRACT INFECTION
     Dosage: 2 PILLS
     Route: 048
     Dates: start: 20150125, end: 20150202

REACTIONS (6)
  - Pain [None]
  - Headache [None]
  - Anxiety [None]
  - Myalgia [None]
  - Panic attack [None]
  - Skin warm [None]

NARRATIVE: CASE EVENT DATE: 20150125
